FAERS Safety Report 6967604-3 (Version None)
Quarter: 2010Q3

REPORT INFORMATION
  Report Type: 
  Country: None (occurrence: None)
  Receive Date: 20100907
  Receipt Date: 20100902
  Transmission Date: 20110219
  Serious: Yes (Death)
  Sender: FDA-Public Use
  Company Number: NL-B.I. PHARMACEUTICALS,INC./RIDGEFIELD-2010-NL-00351NL

PATIENT
  Sex: Female
  Weight: 70 kg

DRUGS (3)
  1. ACTIVASE [Suspect]
     Indication: CEREBRAL INFARCTION
     Route: 042
     Dates: start: 20100722
  2. PERSANTIN [Suspect]
     Indication: CEREBROVASCULAR ACCIDENT
     Dosage: 400 MG
     Route: 048
     Dates: start: 20100722, end: 20100722
  3. ACETYLSALICYLIC ACID [Concomitant]
     Indication: CEREBROVASCULAR ACCIDENT
     Dosage: 80 MG
     Route: 048
     Dates: start: 20100722, end: 20100722

REACTIONS (1)
  - HEPATIC HAEMORRHAGE [None]
